FAERS Safety Report 7145111-5 (Version None)
Quarter: 2010Q4

REPORT INFORMATION
  Report Type: 
  Country: None (occurrence: None)
  Receive Date: 20101208
  Receipt Date: 20101202
  Transmission Date: 20110411
  Serious: Yes (Death, Other)
  Sender: FDA-Public Use
  Company Number: NL-JNJFOC-20101201934

PATIENT

DRUGS (3)
  1. DURAGESIC-100 [Suspect]
     Indication: ILL-DEFINED DISORDER
     Route: 062
  2. ANTIEPILEPTICS [Suspect]
     Indication: PRODUCT USED FOR UNKNOWN INDICATION
     Route: 065
  3. ANTIPSYCHOTIC [Suspect]
     Indication: PRODUCT USED FOR UNKNOWN INDICATION
     Route: 065

REACTIONS (2)
  - COMA [None]
  - DEATH [None]
